FAERS Safety Report 9797469 (Version 1)
Quarter: 2014Q1

REPORT INFORMATION
  Report Type: Report from Study
  Country: TH (occurrence: TH)
  Receive Date: 20140106
  Receipt Date: 20140106
  Transmission Date: 20141002
  Serious: Yes (Death, Other)
  Sender: FDA-Public Use
  Company Number: PHHY2013TH152800

PATIENT
  Age: 90 Year
  Sex: Male

DRUGS (2)
  1. ZOMETA [Suspect]
     Indication: METASTASES TO BONE
     Dosage: 4 MG/ TIME/ MONTH
     Route: 041
  2. ZOMETA [Suspect]
     Dosage: 4 MG /TIME/ MONTH
     Route: 041
     Dates: start: 201310

REACTIONS (6)
  - Sepsis [Fatal]
  - Weight decreased [Unknown]
  - Nausea [Unknown]
  - Vomiting [Unknown]
  - Decreased appetite [Unknown]
  - Hypokalaemia [Unknown]
